FAERS Safety Report 13384939 (Version 1)
Quarter: 2017Q1

REPORT INFORMATION
  Report Type: Spontaneous
  Country: US (occurrence: US)
  Receive Date: 20170330
  Receipt Date: 20170330
  Transmission Date: 20170429
  Serious: Yes (Hospitalization)
  Sender: FDA-Public Use
  Company Number: None

PATIENT
  Age: 70 Year
  Sex: Female
  Weight: 64.12 kg

DRUGS (4)
  1. OPTUNE DEVICE [Concomitant]
  2. BEVACIZUMAB [Concomitant]
     Active Substance: BEVACIZUMAB
  3. TEMODAR [Suspect]
     Active Substance: TEMOZOLOMIDE
     Indication: GLIOBLASTOMA MULTIFORME
     Dosage: 250MG DAILYX5  DOSES/28D ORAL
     Route: 048
     Dates: start: 20161205, end: 20161209
  4. RADIATION THERAPY [Concomitant]
     Active Substance: RADIATION THERAPY

REACTIONS (1)
  - Pneumonia [None]

NARRATIVE: CASE EVENT DATE: 20161211
